FAERS Safety Report 25232515 (Version 5)
Quarter: 2025Q2

REPORT INFORMATION
  Report Type: Spontaneous
  Country: CZ (occurrence: CZ)
  Receive Date: 20250424
  Receipt Date: 20250516
  Transmission Date: 20250716
  Serious: Yes (Hospitalization, Other)
  Sender: ABBVIE
  Company Number: CZ-ABBVIE-6236947

PATIENT
  Age: 30 Year
  Sex: Male
  Weight: 73 kg

DRUGS (7)
  1. RISANKIZUMAB [Suspect]
     Active Substance: RISANKIZUMAB
     Indication: Crohn^s disease
     Route: 042
     Dates: start: 20250129, end: 20250129
  2. RISANKIZUMAB [Suspect]
     Active Substance: RISANKIZUMAB
     Indication: Crohn^s disease
     Dosage: FREQUENCY TEXT: ONCE PER MONTH, WEEK 4
     Route: 042
     Dates: start: 20250227, end: 20250227
  3. Vigantol [Concomitant]
     Indication: Product used for unknown indication
  4. ASACOL [Concomitant]
     Active Substance: MESALAMINE
     Indication: Product used for unknown indication
  5. ASACOL [Concomitant]
     Active Substance: MESALAMINE
     Indication: Product used for unknown indication
     Dates: start: 201905
  6. ASACOL [Concomitant]
     Active Substance: MESALAMINE
     Indication: Product used for unknown indication
     Route: 042
  7. FOLIC ACID [Concomitant]
     Active Substance: FOLIC ACID
     Indication: Product used for unknown indication

REACTIONS (5)
  - Eosinophilic myocarditis [Unknown]
  - Neoplasm [Unknown]
  - Hilar lymphadenopathy [Unknown]
  - Sarcoidosis [Unknown]
  - Inflammatory marker increased [Unknown]

NARRATIVE: CASE EVENT DATE: 20250101
